FAERS Safety Report 24541993 (Version 1)
Quarter: 2024Q4

REPORT INFORMATION
  Report Type: Spontaneous
  Country: US (occurrence: US)
  Receive Date: 20241023
  Receipt Date: 20241023
  Transmission Date: 20250115
  Serious: Yes (Hospitalization, Other)
  Sender: ELI LILLY AND COMPANY
  Company Number: US-ELI_LILLY_AND_COMPANY-US202410007010

PATIENT
  Age: 57 Year

DRUGS (1)
  1. TRULICITY [Suspect]
     Active Substance: DULAGLUTIDE
     Indication: Blood glucose abnormal
     Dosage: 1.5 MG, UNKNOWN
     Route: 065
     Dates: start: 2022

REACTIONS (7)
  - Meningitis bacterial [Recovering/Resolving]
  - Encephalitis [Recovering/Resolving]
  - Cerebrovascular accident [Recovering/Resolving]
  - Cerebral thrombosis [Recovering/Resolving]
  - Herpes zoster [Recovering/Resolving]
  - Retinal detachment [Recovering/Resolving]
  - Incorrect dose administered [Unknown]

NARRATIVE: CASE EVENT DATE: 20240401
